FAERS Safety Report 24558155 (Version 1)
Quarter: 2024Q4

REPORT INFORMATION
  Report Type: Spontaneous
  Country: CN (occurrence: CN)
  Receive Date: 20241028
  Receipt Date: 20241028
  Transmission Date: 20250114
  Serious: Yes (Hospitalization)
  Sender: JOHNSON AND JOHNSON
  Company Number: CN-BAYER-2024A151439

PATIENT
  Age: 77 Year
  Sex: Male
  Weight: 59 kg

DRUGS (1)
  1. XARELTO [Suspect]
     Active Substance: RIVAROXABAN
     Indication: Cerebrovascular accident prophylaxis
     Dosage: 15 MG, QD
     Route: 048
     Dates: start: 20240904, end: 20241002

REACTIONS (6)
  - Chest discomfort [Unknown]
  - Tachypnoea [Unknown]
  - Prothrombin time prolonged [Recovering/Resolving]
  - Activated partial thromboplastin time prolonged [Recovering/Resolving]
  - International normalised ratio increased [Unknown]
  - Off label use [Unknown]

NARRATIVE: CASE EVENT DATE: 20240904
